FAERS Safety Report 19080474 (Version 2)
Quarter: 2021Q2

REPORT INFORMATION
  Report Type: Spontaneous
  Country: GB (occurrence: GB)
  Receive Date: 20210331
  Receipt Date: 20210415
  Transmission Date: 20210717
  Serious: Yes (Other)
  Sender: FDA-Public Use
  Company Number: NVSC2021GB070557

PATIENT
  Sex: Female

DRUGS (1)
  1. CO?AMOXICLAV 1000 MG/200 MG POWDER FOR SOLUTION FOR INJECTION/INFUSION [Suspect]
     Active Substance: AMOXICILLIN\CLAVULANATE POTASSIUM
     Indication: TOOTHACHE
     Dosage: UNK
     Route: 065

REACTIONS (8)
  - Gingival bleeding [Unknown]
  - Thrombocytopenia [Unknown]
  - Haemorrhage [Unknown]
  - Haemoptysis [Unknown]
  - Sneezing [Unknown]
  - Drug hypersensitivity [Unknown]
  - Dyspnoea [Unknown]
  - Cough [Unknown]
